FAERS Safety Report 6988370-1 (Version None)
Quarter: 2010Q3

REPORT INFORMATION
  Report Type: 
  Country: None (occurrence: None)
  Receive Date: 20100916
  Receipt Date: 20100910
  Transmission Date: 20110219
  Serious: Yes (Hospitalization, Other)
  Sender: FDA-Public Use
  Company Number: JP-MERCK-1008USA04043

PATIENT
  Age: 63 Year
  Sex: Male
  Weight: 63 kg

DRUGS (4)
  1. JANUVIA [Suspect]
     Indication: DIABETES MELLITUS
     Route: 048
     Dates: start: 20100330, end: 20100618
  2. JANUVIA [Suspect]
     Route: 048
     Dates: start: 20100301, end: 20100329
  3. JANUVIA [Suspect]
     Route: 048
     Dates: start: 20100701, end: 20100705
  4. JANUVIA [Suspect]
     Route: 048
     Dates: start: 20100706

REACTIONS (1)
  - CEREBRAL INFARCTION [None]
